FAERS Safety Report 5069418-0 (Version None)
Quarter: 2006Q3

REPORT INFORMATION
  Report Type: 
  Country: None (occurrence: None)
  Receive Date: 20060714
  Receipt Date: 20060328
  Transmission Date: 20061208
  Serious: No
  Sender: FDA-Public Use
  Company Number: 2006SP001414

PATIENT
  Age: 85 Year
  Sex: Female
  Weight: 58.0604 kg

DRUGS (3)
  1. LUNESTA [Suspect]
     Indication: INSOMNIA
     Dosage: 3 MG;X1;ORAL
     Route: 048
     Dates: start: 20060327, end: 20060327
  2. LISINOPRIL [Concomitant]
  3. ATENOLOL [Concomitant]

REACTIONS (3)
  - DRUG INEFFECTIVE [None]
  - DYSGEUSIA [None]
  - INITIAL INSOMNIA [None]
